FAERS Safety Report 17014431 (Version 1)
Quarter: 2019Q4

REPORT INFORMATION
  Report Type: Other
  Country: GB (occurrence: GB)
  Receive Date: 20191111
  Receipt Date: 20191111
  Transmission Date: 20200122
  Serious: Yes (Other)
  Sender: FDA-Public Use
  Company Number: GB-EMCURE PHARMACEUTICALS LTD-2019-EPL-1016

PATIENT
  Age: 88 Year
  Sex: Male

DRUGS (6)
  1. MEROPENEM TRIHYDRATE [Concomitant]
     Active Substance: MEROPENEM
  2. BISOPROLOL [Concomitant]
     Active Substance: BISOPROLOL
  3. WARFARIN [Concomitant]
     Active Substance: WARFARIN
  4. SIMVASTATIN. [Concomitant]
     Active Substance: SIMVASTATIN
  5. SULFAMETHOXAZOLE, TRIMETHOPRIM [Suspect]
     Active Substance: SULFAMETHOXAZOLE\TRIMETHOPRIM
     Indication: POSTOPERATIVE WOUND INFECTION
     Dosage: 1920 MILLIGRAM, DAILY
     Route: 048
     Dates: start: 20191001, end: 20191011
  6. TEICOPLANIN [Concomitant]
     Active Substance: TEICOPLANIN

REACTIONS (2)
  - Hyperkalaemia [Recovered/Resolved]
  - Metabolic acidosis [Recovered/Resolved]

NARRATIVE: CASE EVENT DATE: 20191009
